FAERS Safety Report 25752325 (Version 1)
Quarter: 2025Q3

REPORT INFORMATION
  Report Type: Spontaneous
  Country: US (occurrence: US)
  Receive Date: 20250902
  Receipt Date: 20250902
  Transmission Date: 20251021
  Serious: Yes (Hospitalization)
  Sender: SANOFI AVENTIS
  Company Number: US-SA-2025SA259323

PATIENT
  Age: 12 Year
  Sex: Female
  Weight: 43 kg

DRUGS (1)
  1. THYMOGLOBULIN [Suspect]
     Active Substance: LAPINE T-LYMPHOCYTE IMMUNE GLOBULIN
     Indication: Prophylaxis against transplant rejection
     Dosage: 100 MG, QOD (100 MG IV Q48 X 3 DOSES)
     Route: 042
     Dates: start: 20250813, end: 20250817

REACTIONS (10)
  - Serum sickness [Recovering/Resolving]
  - Rash [Recovered/Resolved]
  - Pyrexia [Recovering/Resolving]
  - Arthralgia [Recovering/Resolving]
  - Myalgia [Recovering/Resolving]
  - Pain [Recovering/Resolving]
  - Pain in extremity [Recovering/Resolving]
  - Groin pain [Recovering/Resolving]
  - Pallor [Recovering/Resolving]
  - Drug specific antibody present [Unknown]

NARRATIVE: CASE EVENT DATE: 20250801
